FAERS Safety Report 15746498 (Version 3)
Quarter: 2019Q4

REPORT INFORMATION
  Report Type: Spontaneous
  Country: US (occurrence: US)
  Receive Date: 20181220
  Receipt Date: 20191028
  Transmission Date: 20200122
  Serious: Yes (Other)
  Sender: FDA-Public Use
  Company Number: US-SA-2018SA344281

PATIENT
  Age: 46 Year
  Sex: Female
  Weight: 59 kg

DRUGS (7)
  1. PARAPLATIN [Concomitant]
     Active Substance: CARBOPLATIN
     Dosage: UNK
     Dates: start: 20060927, end: 20060927
  2. TAXOTERE [Suspect]
     Active Substance: DOCETAXEL
     Indication: BREAST CANCER FEMALE
     Dosage: 55 MG, UNK
     Route: 042
     Dates: start: 20060623, end: 20060623
  3. TAXOTERE [Suspect]
     Active Substance: DOCETAXEL
     Dosage: UNK
     Route: 042
     Dates: start: 20060927, end: 20060927
  4. LORAZEPAM. [Concomitant]
     Active Substance: LORAZEPAM
  5. PARAPLATIN [Concomitant]
     Active Substance: CARBOPLATIN
     Indication: BREAST CANCER FEMALE
     Dosage: UNK
     Dates: start: 20060623, end: 20060623
  6. ALOXI [Concomitant]
     Active Substance: PALONOSETRON HYDROCHLORIDE
  7. DEXAMETHASONE. [Concomitant]
     Active Substance: DEXAMETHASONE

REACTIONS (3)
  - Alopecia [Recovering/Resolving]
  - Psychological trauma [Unknown]
  - Emotional distress [Unknown]

NARRATIVE: CASE EVENT DATE: 200607
